FAERS Safety Report 11271173 (Version 2)
Quarter: 2015Q3

REPORT INFORMATION
  Report Type: Spontaneous
  Country: PL (occurrence: PL)
  Receive Date: 20150714
  Receipt Date: 20150723
  Transmission Date: 20151125
  Serious: Yes (Hospitalization, Other)
  Sender: FDA-Public Use
  Company Number: PL-GLAXOSMITHKLINE INC.-PL2015GSK098995

PATIENT
  Age: 57 Year
  Sex: Female

DRUGS (2)
  1. LAPATINIB [Suspect]
     Active Substance: LAPATINIB
     Indication: HER-2 POSITIVE BREAST CANCER
     Dosage: 1250 MG, QD
  2. CAPECITABINE. [Suspect]
     Active Substance: CAPECITABINE
     Indication: HER-2 POSITIVE BREAST CANCER
     Dosage: 2000 MG/M2, UNK

REACTIONS (9)
  - Neutropenia [Unknown]
  - Skin exfoliation [Unknown]
  - Palmar-plantar erythrodysaesthesia syndrome [Unknown]
  - Ulcer [Unknown]
  - Diarrhoea [Unknown]
  - Gait disturbance [Unknown]
  - Thrombocytopenia [Unknown]
  - Condition aggravated [Unknown]
  - Skin fissures [Unknown]
